FAERS Safety Report 13384823 (Version 1)
Quarter: 2017Q1

REPORT INFORMATION
  Report Type: Spontaneous
  Country: US (occurrence: US)
  Receive Date: 20170329
  Receipt Date: 20170329
  Transmission Date: 20170429
  Serious: No
  Sender: FDA-Public Use
  Company Number: None

PATIENT
  Age: 28 Year
  Sex: Female
  Weight: 142.6 kg

DRUGS (4)
  1. VITAMIN B12 [Concomitant]
     Active Substance: CYANOCOBALAMIN
  2. VITAMIN D3 [Concomitant]
     Active Substance: CHOLECALCIFEROL
  3. LABETALOL [Suspect]
     Active Substance: LABETALOL\LABETALOL HYDROCHLORIDE
     Indication: HYPERTENSION
     Dosage: ?          QUANTITY:30 TABLET(S);?
  4. LISINOPRIL. [Concomitant]
     Active Substance: LISINOPRIL

REACTIONS (11)
  - Dizziness [None]
  - Heart rate irregular [None]
  - Paranasal sinus discomfort [None]
  - Maternal exposure timing unspecified [None]
  - Swollen tongue [None]
  - Chest pain [None]
  - Nasal congestion [None]
  - Fatigue [None]
  - Ear pain [None]
  - Vision blurred [None]
  - Unevaluable event [None]

NARRATIVE: CASE EVENT DATE: 20110810
